FAERS Safety Report 15573992 (Version 1)
Quarter: 2018Q4

REPORT INFORMATION
  Report Type: Spontaneous
  Country: US (occurrence: US)
  Receive Date: 20181101
  Receipt Date: 20181101
  Transmission Date: 20190205
  Serious: Yes (Hospitalization, Other)
  Sender: FDA-Public Use
  Company Number: US-CATALENT PHARMA SOLUTIONS-CAT-000388-2016

PATIENT
  Age: 23 Year
  Sex: Male

DRUGS (3)
  1. VALPROIC ACID. [Suspect]
     Active Substance: VALPROIC ACID
     Dosage: TAPERED OFF
     Route: 065
  2. VALPROIC ACID. [Suspect]
     Active Substance: VALPROIC ACID
     Dosage: 35 G, WEEKLY
     Route: 065
  3. VALPROIC ACID. [Suspect]
     Active Substance: VALPROIC ACID
     Indication: PRODUCT USED FOR UNKNOWN INDICATION
     Dosage: 22.5 G, WEEKLY
     Route: 065

REACTIONS (4)
  - Pulmonary alveolar haemorrhage [Unknown]
  - Respiratory failure [Recovered/Resolved]
  - Haemoptysis [Recovering/Resolving]
  - Thrombocytopenia [Recovering/Resolving]
